FAERS Safety Report 6323377-9 (Version None)
Quarter: 2009Q3

REPORT INFORMATION
  Report Type: 
  Country: None (occurrence: None)
  Receive Date: 20090824
  Receipt Date: 20090401
  Transmission Date: 20100115
  Serious: No
  Sender: FDA-Public Use
  Company Number: US-ABBOTT-09P-163-0566451-00

PATIENT
  Sex: Female
  Weight: 52.21 kg

DRUGS (6)
  1. NIASPAN [Suspect]
     Indication: BLOOD CHOLESTEROL INCREASED
     Route: 048
     Dates: start: 20090220
  2. FELDENE [Suspect]
     Indication: ANTIINFLAMMATORY THERAPY
     Dates: start: 20090220
  3. FELDENE [Suspect]
     Indication: JOINT INJURY
  4. ZOCOR [Concomitant]
     Indication: BLOOD CHOLESTEROL INCREASED
  5. CLIMARA [Concomitant]
     Indication: HORMONE REPLACEMENT THERAPY
     Dosage: PATCH
  6. FOSAMAX [Concomitant]
     Indication: OSTEOPOROSIS

REACTIONS (5)
  - FLUSHING [None]
  - ILL-DEFINED DISORDER [None]
  - PRURITUS [None]
  - SENSORY DISTURBANCE [None]
  - SKIN BURNING SENSATION [None]
